FAERS Safety Report 6043434-4 (Version None)
Quarter: 2009Q1

REPORT INFORMATION
  Report Type: 
  Country: None (occurrence: None)
  Receive Date: 20090120
  Receipt Date: 20090116
  Transmission Date: 20090719
  Serious: Yes (Death, Life-Threatening)
  Sender: FDA-Public Use
  Company Number: GR-WYE-G01444608

PATIENT
  Age: 70 Year
  Sex: Male
  Weight: 100 kg

DRUGS (4)
  1. TYGACIL [Suspect]
     Indication: ENDOCARDITIS STAPHYLOCOCCAL
     Route: 042
     Dates: start: 20080401, end: 20080410
  2. CANCIDAS [Concomitant]
     Dosage: 50MG ONCE DAILY
  3. MERONEM [Concomitant]
     Dosage: 1GR THREE TIMES DAILY
     Route: 042
  4. COLISTIN SULFATE [Concomitant]
     Dosage: 1,000,000 UNITS THREE TIMES DAILY

REACTIONS (3)
  - MULTI-ORGAN FAILURE [None]
  - SEPSIS [None]
  - THROMBOCYTOPENIA [None]
